FAERS Safety Report 8591605-5 (Version None)
Quarter: 2012Q3

REPORT INFORMATION
  Report Type: 
  Country: None (occurrence: None)
  Receive Date: 20120814
  Receipt Date: 20120813
  Transmission Date: 20120928
  Serious: Yes (Other)
  Sender: FDA-Public Use
  Company Number: US-PFIZER INC-2012197608

PATIENT
  Sex: Female

DRUGS (1)
  1. FELDENE [Suspect]
     Dosage: 20 MG, UNK

REACTIONS (1)
  - DERMATITIS BULLOUS [None]
